FAERS Safety Report 13346114 (Version 1)
Quarter: 2017Q1

REPORT INFORMATION
  Report Type: Spontaneous
  Country: US (occurrence: US)
  Receive Date: 20170317
  Receipt Date: 20170317
  Transmission Date: 20170428
  Serious: Yes (Other)
  Sender: FDA-Public Use
  Company Number: None

PATIENT
  Age: 60 Year
  Sex: Female
  Weight: 59.4 kg

DRUGS (3)
  1. SELENIUM [Concomitant]
     Active Substance: SELENIUM
  2. ALPRAZOLAM. [Concomitant]
     Active Substance: ALPRAZOLAM
  3. DOXYCYC MONO 100MG CAP [Suspect]
     Active Substance: DOXYCYCLINE
     Indication: BACTERIAL INFECTION
     Dosage: ?          QUANTITY:14 CAPSULE(S);?
     Route: 048
     Dates: start: 20170315, end: 20170316

REACTIONS (13)
  - Balance disorder [None]
  - Headache [None]
  - Lethargy [None]
  - Musculoskeletal stiffness [None]
  - Vision blurred [None]
  - Dysarthria [None]
  - Feeling abnormal [None]
  - Gait disturbance [None]
  - Defaecation urgency [None]
  - Chest discomfort [None]
  - Hypoaesthesia [None]
  - Blindness unilateral [None]
  - Blindness transient [None]

NARRATIVE: CASE EVENT DATE: 20170316
